FAERS Safety Report 4305149-X (Version None)
Quarter: 2004Q1

REPORT INFORMATION
  Report Type: 
  Country: None (occurrence: None)
  Receive Date: 20040223
  Receipt Date: 20040102
  Transmission Date: 20041129
  Serious: No
  Sender: FDA-Public Use
  Company Number: SU-2004-002038

PATIENT

DRUGS (1)
  1. BENICAR [Suspect]
     Indication: HYPERTENSION
     Dosage: MG UNK PO
     Route: 048

REACTIONS (3)
  - BLOOD ELECTROLYTES DECREASED [None]
  - CREATININE RENAL CLEARANCE DECREASED [None]
  - ELECTROLYTE IMBALANCE [None]
